FAERS Safety Report 5719564-0 (Version None)
Quarter: 2008Q2

REPORT INFORMATION
  Report Type: 
  Country: None (occurrence: None)
  Receive Date: 20080428
  Receipt Date: 20071112
  Transmission Date: 20081010
  Serious: Yes (Other)
  Sender: FDA-Public Use
  Company Number: A0723247A

PATIENT
  Age: 48 Year
  Sex: Female
  Weight: 65.3 kg

DRUGS (2)
  1. LAPATINIB [Suspect]
     Indication: BREAST CANCER METASTATIC
     Dosage: 1500MG PER DAY
     Route: 048
     Dates: start: 20060913
  2. PACLITAXEL [Suspect]
     Indication: BREAST CANCER METASTATIC
     Dosage: 80MGM2 CYCLIC
     Route: 042
     Dates: start: 20060913

REACTIONS (2)
  - LEUKOPENIA [None]
  - NEUTROPENIA [None]
